FAERS Safety Report 22234969 (Version 1)
Quarter: 2023Q2

REPORT INFORMATION
  Report Type: Spontaneous
  Country: CN (occurrence: CN)
  Receive Date: 20230420
  Receipt Date: 20230420
  Transmission Date: 20230722
  Serious: Yes (Other)
  Sender: FDA-Public Use
  Company Number: CN-PFIZER INC-202300159652

PATIENT
  Age: 17 Year
  Sex: Female

DRUGS (3)
  1. SIROLIMUS [Suspect]
     Active Substance: SIROLIMUS
     Indication: Malformation venous
     Dosage: 4 MG, 1X/DAY FOR 2 YEARS
  2. SIROLIMUS [Suspect]
     Active Substance: SIROLIMUS
     Indication: Lymphatic malformation
     Dosage: 3 MG, 1X/DAY
  3. SIROLIMUS [Suspect]
     Active Substance: SIROLIMUS
     Indication: Acquired gene mutation
     Dosage: 4 MG, 1X/DAY

REACTIONS (6)
  - Seizure [Unknown]
  - Mental impairment [Unknown]
  - Muscular weakness [Unknown]
  - Acne [Unknown]
  - Decreased appetite [Unknown]
  - Fatigue [Unknown]
